FAERS Safety Report 5917400-0 (Version None)
Quarter: 2008Q4

REPORT INFORMATION
  Report Type: 
  Country: None (occurrence: None)
  Receive Date: 20081014
  Receipt Date: 20081010
  Transmission Date: 20090506
  Serious: Yes (Hospitalization)
  Sender: FDA-Public Use
  Company Number: B0212234A

PATIENT
  Age: 7 Year
  Sex: Male

DRUGS (3)
  1. CLAMOXYL [Suspect]
     Indication: NASOPHARYNGITIS
     Route: 048
     Dates: start: 19980211
  2. ASPEGIC 325 [Suspect]
     Indication: NASOPHARYNGITIS
     Route: 048
     Dates: start: 19980209
  3. ACETAMINOPHEN [Concomitant]
     Indication: NASOPHARYNGITIS
     Route: 048
     Dates: start: 19980209

REACTIONS (16)
  - BLINDNESS [None]
  - C-REACTIVE PROTEIN INCREASED [None]
  - CONJUNCTIVAL DISORDER [None]
  - CORNEAL LESION [None]
  - CORNEAL OPACITY [None]
  - DERMATITIS BULLOUS [None]
  - DYSPNOEA [None]
  - FATIGUE [None]
  - KERATOCONJUNCTIVITIS SICCA [None]
  - MUCOUS MEMBRANE DISORDER [None]
  - PHOTOPHOBIA [None]
  - PYREXIA [None]
  - RASH MACULO-PAPULAR [None]
  - SKIN EXFOLIATION [None]
  - TOXIC EPIDERMAL NECROLYSIS [None]
  - VISUAL ACUITY REDUCED [None]
